FAERS Safety Report 16686779 (Version 2)
Quarter: 2019Q3

REPORT INFORMATION
  Report Type: Spontaneous
  Country: IT (occurrence: IT)
  Receive Date: 20190809
  Receipt Date: 20190827
  Transmission Date: 20191004
  Serious: Yes (Other)
  Sender: FDA-Public Use
  Company Number: IT-BAYER-2019-141663

PATIENT
  Age: 34 Year
  Sex: Female

DRUGS (8)
  1. CIPROFLOXACIN BETAIN [Suspect]
     Active Substance: CIPROFLOXACIN
     Indication: COLITIS ULCERATIVE
     Dosage: 500 MG, BID
     Route: 042
  2. MESALAZINE [Concomitant]
     Active Substance: MESALAMINE
     Dosage: 3.2 G, QD
  3. AZATHIOPRINE. [Concomitant]
     Active Substance: AZATHIOPRINE
  4. METRONIDAZOLE. [Concomitant]
     Active Substance: METRONIDAZOLE
     Indication: COLITIS ULCERATIVE
     Dosage: 500 MG, TID
     Route: 042
  5. INDOMETHACIN SODIUM [Concomitant]
     Active Substance: INDOMETHACIN SODIUM
  6. HYDROCORTISONE. [Concomitant]
     Active Substance: HYDROCORTISONE
     Route: 048
  7. ATOSIBAN [Concomitant]
     Active Substance: ATOSIBAN
  8. VANCOMYCIN [Concomitant]
     Active Substance: VANCOMYCIN
     Indication: CLOSTRIDIUM DIFFICILE INFECTION
     Dosage: 1 G, BID

REACTIONS (3)
  - Caesarean section [None]
  - Maternal exposure during pregnancy [None]
  - Premature delivery [None]
